FAERS Safety Report 6951515-3 (Version None)
Quarter: 2010Q3

REPORT INFORMATION
  Report Type: 
  Country: None (occurrence: None)
  Receive Date: 20100828
  Receipt Date: 20100324
  Transmission Date: 20110219
  Serious: No
  Sender: FDA-Public Use
  Company Number: US-ABBOTT-10P-163-0635556-00

PATIENT
  Sex: Male
  Weight: 79.904 kg

DRUGS (2)
  1. NIASPAN [Suspect]
     Indication: BLOOD CHOLESTEROL INCREASED
     Dosage: 500 MG DAILY
     Dates: start: 20100101, end: 20100301
  2. NIASPAN [Suspect]
     Dosage: 1000 MG DAILY
     Dates: start: 20100301

REACTIONS (6)
  - FLUSHING [None]
  - HIGH DENSITY LIPOPROTEIN DECREASED [None]
  - HYPERHIDROSIS [None]
  - PARAESTHESIA [None]
  - SINUSITIS [None]
  - TINNITUS [None]
